FAERS Safety Report 19022377 (Version 1)
Quarter: 2021Q1

REPORT INFORMATION
  Report Type: Spontaneous
  Country: US (occurrence: US)
  Receive Date: 20210318
  Receipt Date: 20210318
  Transmission Date: 20210420
  Serious: No
  Sender: FDA-Public Use
  Company Number: US-ASTRAZENECA-2021A074019

PATIENT
  Sex: Female
  Weight: 63.5 kg

DRUGS (3)
  1. SYMLIN [Suspect]
     Active Substance: PRAMLINTIDE ACETATE
     Indication: TYPE 1 DIABETES MELLITUS
     Dosage: TAKES BEFORE MEALS AND 95 MCG WITH BREAKFAST, 45 MCG WITH LUNCH AND 45 MCG WITH DINNER AND BEEN O...
     Route: 058
  2. SYMLIN [Suspect]
     Active Substance: PRAMLINTIDE ACETATE
     Indication: TYPE 1 DIABETES MELLITUS
     Dosage: REDUCED DOSE
     Route: 058
  3. INSULIN [Concomitant]
     Active Substance: INSULIN NOS

REACTIONS (6)
  - Gastrooesophageal reflux disease [Unknown]
  - Injection site pruritus [Unknown]
  - Blood glucose increased [Unknown]
  - Stress [Unknown]
  - Blood glucose decreased [Unknown]
  - Product dose omission issue [Unknown]
